FAERS Safety Report 4553672-5 (Version None)
Quarter: 2005Q1

REPORT INFORMATION
  Report Type: 
  Country: None (occurrence: None)
  Receive Date: 20041227
  Receipt Date: 20040527
  Transmission Date: 20050727
  Serious: Yes (Other)
  Sender: FDA-Public Use
  Company Number: US-JNJFOC-20040506656

PATIENT
  Age: 72 Year
  Sex: Male

DRUGS (1)
  1. REOPRO [Suspect]
     Indication: CARDIAC FAILURE CONGESTIVE
     Dosage: BOLUS DOSE
     Route: 040
     Dates: start: 20040524, end: 20040524

REACTIONS (1)
  - THROMBOCYTOPENIA [None]
